FAERS Safety Report 6386076-3 (Version None)
Quarter: 2009Q4

REPORT INFORMATION
  Report Type: 
  Country: None (occurrence: None)
  Receive Date: 20091002
  Receipt Date: 20081217
  Transmission Date: 20100525
  Serious: No
  Sender: FDA-Public Use
  Company Number: US-ASTRAZENECA-2008UW25265

PATIENT
  Age: 46 Year
  Sex: Female
  Weight: 90.7 kg

DRUGS (1)
  1. ARIMIDEX [Suspect]
     Indication: BREAST CANCER
     Route: 048
     Dates: start: 20060501, end: 20081119

REACTIONS (7)
  - ARTHRALGIA [None]
  - BACK PAIN [None]
  - HOT FLUSH [None]
  - LICHEN PLANUS [None]
  - MUSCULOSKELETAL PAIN [None]
  - MYALGIA [None]
  - WEIGHT INCREASED [None]
